FAERS Safety Report 17127570 (Version 1)
Quarter: 2019Q4

REPORT INFORMATION
  Report Type: Spontaneous
  Country: GB (occurrence: GB)
  Receive Date: 20191209
  Receipt Date: 20191209
  Transmission Date: 20200122
  Serious: Yes (Hospitalization)
  Sender: FDA-Public Use
  Company Number: GB-ACCORD-163735

PATIENT
  Age: 44 Year
  Sex: Female
  Weight: 63.5 kg

DRUGS (7)
  1. FOLIC ACID. [Concomitant]
     Active Substance: FOLIC ACID
  2. NATECAL D3 [Concomitant]
     Active Substance: CALCIUM CARBONATE\CHOLECALCIFEROL
  3. THIAMINE. [Concomitant]
     Active Substance: THIAMINE
  4. OMEPRAZOLE. [Concomitant]
     Active Substance: OMEPRAZOLE
  5. PREDNISOLONE. [Concomitant]
     Active Substance: PREDNISOLONE
  6. FUROSEMIDE. [Suspect]
     Active Substance: FUROSEMIDE
     Indication: ASCITES
     Dosage: IN THE MORNING
     Route: 048
     Dates: start: 20190916, end: 20190920
  7. SPIRONOLACTONE. [Concomitant]
     Active Substance: SPIRONOLACTONE

REACTIONS (1)
  - Target skin lesion [Recovering/Resolving]

NARRATIVE: CASE EVENT DATE: 20190917
